FAERS Safety Report 9509754 (Version 1)
Quarter: 2013Q3

REPORT INFORMATION
  Report Type: Spontaneous
  Country: DE (occurrence: DE)
  Receive Date: 20130909
  Receipt Date: 20130909
  Transmission Date: 20140515
  Serious: Yes (Other)
  Sender: FDA-Public Use
  Company Number: DE-TEVA-430487USA

PATIENT
  Sex: Female

DRUGS (1)
  1. BENDAMUSTINE [Suspect]
     Indication: CHRONIC LYMPHOCYTIC LEUKAEMIA

REACTIONS (4)
  - Drug intolerance [Unknown]
  - Anaphylactic shock [Unknown]
  - Blood pressure decreased [Unknown]
  - Renal failure [Unknown]
